FAERS Safety Report 10657712 (Version 1)
Quarter: 2014Q4

REPORT INFORMATION
  Report Type: Spontaneous
  Country: US (occurrence: None)
  Receive Date: 20141216
  Receipt Date: 20141216
  Transmission Date: 20150529
  Serious: Yes (Hospitalization)
  Sender: FDA-Public Use
  Company Number: None

PATIENT
  Age: 62 Year
  Sex: Female

DRUGS (12)
  1. AMPYRA [Suspect]
     Active Substance: DALFAMPRIDINE
     Indication: MULTIPLE SCLEROSIS
     Route: 048
     Dates: start: 201006
  2. FLUOXETINE [Concomitant]
     Active Substance: FLUOXETINE\FLUOXETINE HYDROCHLORIDE
  3. BACLOFEN. [Concomitant]
     Active Substance: BACLOFEN
  4. OMEPRAZOLE. [Concomitant]
     Active Substance: OMEPRAZOLE
  5. ZOCOR [Concomitant]
     Active Substance: SIMVASTATIN
  6. FOLIC ACID. [Concomitant]
     Active Substance: FOLIC ACID
  7. MIRTAZAPINE. [Concomitant]
     Active Substance: MIRTAZAPINE
  8. HCTZ [Concomitant]
     Active Substance: HYDROCHLOROTHIAZIDE
  9. METHOTREXATE [Concomitant]
     Active Substance: METHOTREXATE
  10. TYLENOL [Concomitant]
     Active Substance: ACETAMINOPHEN
  11. GABAPENTIN. [Concomitant]
     Active Substance: GABAPENTIN
  12. MVI [Concomitant]
     Active Substance: VITAMINS

REACTIONS (3)
  - Urine ketone body present [None]
  - Multiple sclerosis relapse [None]
  - Urinary tract infection [None]

NARRATIVE: CASE EVENT DATE: 20141212
